FAERS Safety Report 23205656 (Version 1)
Quarter: 2023Q4

REPORT INFORMATION
  Report Type: Spontaneous
  Country: US (occurrence: US)
  Receive Date: 20231120
  Receipt Date: 20231120
  Transmission Date: 20240109
  Serious: Yes (Hospitalization, Other)
  Sender: FDA-Public Use
  Company Number: US-AMERICAN REGENT INC-2023002676

PATIENT
  Age: 52 Year
  Sex: Male
  Weight: 139.5 kg

DRUGS (3)
  1. VENOFER [Suspect]
     Active Substance: IRON SUCROSE
     Indication: Product used for unknown indication
     Dosage: 100 MILLIGRAM, LAST DOSE ADMINISTRATION DATE: 09.NOV.2023 (THE TENTH DOSE)
     Dates: start: 20231019
  2. MIRCERA [Suspect]
     Active Substance: METHOXY POLYETHYLENE GLYCOL-EPOETIN BETA
     Indication: Anaemia
     Dosage: 100 MCG,1 IN 2 WK (FIRST AND SECOND DOSE)
     Dates: start: 20231005, end: 20231026
  3. MIRCERA [Suspect]
     Active Substance: METHOXY POLYETHYLENE GLYCOL-EPOETIN BETA
     Dosage: 150 MICROGRAM, 1 IN 2 WK (3RD INCREASED DOSE)
     Dates: start: 20231107, end: 20231107

REACTIONS (1)
  - Drug hypersensitivity [Recovered/Resolved]

NARRATIVE: CASE EVENT DATE: 20231107
